FAERS Safety Report 7204474-2 (Version None)
Quarter: 2010Q4

REPORT INFORMATION
  Report Type: 
  Country: None (occurrence: None)
  Receive Date: 20101217
  Receipt Date: 20101213
  Transmission Date: 20110411
  Serious: Yes (Death, Hospitalization)
  Sender: FDA-Public Use
  Company Number: 2010SP021493

PATIENT
  Age: 40 Year
  Sex: Female
  Weight: 45.6 kg

DRUGS (4)
  1. PEGINTERFERON ALFA-2B [Suspect]
     Indication: HEPATITIS C
     Dosage: 0.13 ML;QW;SC
     Route: 058
     Dates: start: 20090609, end: 20100405
  2. RIBAVIRIN [Suspect]
     Indication: HEPATITIS C
     Dosage: 200 MG;BID;PO
     Route: 048
     Dates: start: 20090609, end: 20100412
  3. LOXONIN [Concomitant]
  4. FUROZIN [Concomitant]

REACTIONS (7)
  - ALTERED STATE OF CONSCIOUSNESS [None]
  - ANXIETY [None]
  - DEPRESSION [None]
  - HALLUCINATION [None]
  - SCHIZOPHRENIA [None]
  - STRESS [None]
  - SUICIDE ATTEMPT [None]
